FAERS Safety Report 8390325-X (Version None)
Quarter: 2012Q2

REPORT INFORMATION
  Report Type: 
  Country: None (occurrence: None)
  Receive Date: 20120529
  Receipt Date: 20120524
  Transmission Date: 20120825
  Serious: Yes (Death)
  Sender: FDA-Public Use
  Company Number: PE-PFIZER INC-2012121376

PATIENT
  Age: 60 Year
  Sex: Male

DRUGS (1)
  1. SUTENT [Suspect]
     Indication: LUNG CANCER METASTATIC
     Dosage: 25 MG, 1X/DAY
     Route: 048

REACTIONS (2)
  - RENAL CANCER [None]
  - NEOPLASM MALIGNANT [None]
